FAERS Safety Report 8617175-0 (Version None)
Quarter: 2012Q3

REPORT INFORMATION
  Report Type: 
  Country: None (occurrence: None)
  Receive Date: 20120823
  Receipt Date: 20120810
  Transmission Date: 20120928
  Serious: Yes (Other)
  Sender: FDA-Public Use
  Company Number: DE-VERTEX PHARMACEUTICAL INC.-2012-019796

PATIENT
  Age: 48 Year
  Sex: Male
  Weight: 70 kg

DRUGS (4)
  1. INCIVEK [Suspect]
     Indication: HEPATITIS C
     Dosage: DOSAGE FORM: TABLET
     Route: 048
     Dates: start: 20111001, end: 20120201
  2. RIBAVIRIN [Concomitant]
     Dosage: DOSAGE FORM: TABLETS
     Route: 048
  3. INTERFERON [Concomitant]
     Dosage: DOSAGE FORM: INJECTION
     Dates: start: 20111001
  4. RIBAVIRIN [Concomitant]
     Dosage: DOSAGE FORM: TABLETS
     Route: 048
     Dates: start: 20111001

REACTIONS (5)
  - RASH [None]
  - DYSPNOEA [None]
  - DYSGEUSIA [None]
  - MICTURITION URGENCY [None]
  - PRURITUS [None]
